FAERS Safety Report 6541058-3 (Version None)
Quarter: 2010Q1

REPORT INFORMATION
  Report Type: 
  Country: None (occurrence: None)
  Receive Date: 20100118
  Receipt Date: 20100111
  Transmission Date: 20100710
  Serious: Yes (Hospitalization)
  Sender: FDA-Public Use
  Company Number: AU-VALEANT-2010VX000095

PATIENT
  Age: 85 Year
  Sex: Female

DRUGS (6)
  1. MESTINON [Suspect]
     Indication: MYASTHENIA GRAVIS
     Route: 048
  2. FLECAINIDE [Concomitant]
     Route: 065
  3. METOPROLOL [Concomitant]
     Route: 065
  4. SIMVASTATIN [Concomitant]
     Route: 065
  5. WARFARIN [Concomitant]
     Route: 065
  6. LOSEC [Concomitant]
     Route: 065

REACTIONS (9)
  - ABDOMINAL DISCOMFORT [None]
  - ATRIAL FIBRILLATION [None]
  - MUSCULAR WEAKNESS [None]
  - NAUSEA [None]
  - NO THERAPEUTIC RESPONSE [None]
  - OESOPHAGEAL PAIN [None]
  - PRODUCT FORMULATION ISSUE [None]
  - PRODUCT SUBSTITUTION ISSUE [None]
  - VOMITING [None]
